FAERS Safety Report 12120752 (Version 1)
Quarter: 2016Q1

REPORT INFORMATION
  Report Type: Spontaneous
  Country: US (occurrence: US)
  Receive Date: 20160226
  Receipt Date: 20160226
  Transmission Date: 20160526
  Serious: No
  Sender: FDA-Public Use
  Company Number: US-ALLERGAN-1315598US

PATIENT
  Age: 86 Year
  Sex: Female

DRUGS (4)
  1. CIPROFLOXACIN. [Suspect]
     Active Substance: CIPROFLOXACIN
     Indication: PRODUCT USED FOR UNKNOWN INDICATION
     Dosage: 1 GTT, QID
     Route: 047
     Dates: start: 201304, end: 201305
  2. REFRESH OPTIVE SENSITIVE [Suspect]
     Active Substance: CARBOXYMETHYLCELLULOSE SODIUM\GLYCERIN
     Indication: DRY EYE
     Dosage: 2 GTT, QID
     Route: 047
     Dates: start: 20130320
  3. CIPROFLOXACIN. [Suspect]
     Active Substance: CIPROFLOXACIN
     Dosage: 1 GTT, QID
     Route: 047
     Dates: start: 20130309, end: 20130325
  4. EYE DROPS NOS [Concomitant]
     Active Substance: UNSPECIFIED INGREDIENT
     Indication: POSTOPERATIVE CARE

REACTIONS (2)
  - Drug ineffective [Unknown]
  - Pharyngitis [Unknown]
